FAERS Safety Report 7814923-4 (Version None)
Quarter: 2011Q4

REPORT INFORMATION
  Report Type: 
  Country: None (occurrence: None)
  Receive Date: 20111014
  Receipt Date: 20110927
  Transmission Date: 20120403
  Serious: Yes (Hospitalization)
  Sender: FDA-Public Use
  Company Number: US-GLAXOSMITHKLINE-A0948852A

PATIENT
  Age: 64 Year
  Sex: Female
  Weight: 57.4 kg

DRUGS (7)
  1. ASPIRIN [Concomitant]
  2. CORTICOSTEROID [Concomitant]
  3. NICOTROL [Suspect]
     Indication: SMOKING CESSATION THERAPY
     Dates: start: 20110927, end: 20110927
  4. NICOTINE [Suspect]
     Indication: PRODUCT USED FOR UNKNOWN INDICATION
     Route: 062
  5. VALIUM [Concomitant]
  6. KLONOPIN [Concomitant]
  7. SYNTHROID [Concomitant]

REACTIONS (4)
  - FEELING ABNORMAL [None]
  - PRURITUS [None]
  - OEDEMA PERIPHERAL [None]
  - AGEUSIA [None]
